FAERS Safety Report 8787715 (Version 2)
Quarter: 2013Q1

REPORT INFORMATION
  Report Type: Spontaneous
  Country: CA (occurrence: CA)
  Receive Date: 20120914
  Receipt Date: 20130318
  Transmission Date: 20140127
  Serious: Yes (Death, Hospitalization)
  Sender: FDA-Public Use
  Company Number: CA-AMGEN-CANSP2012057842

PATIENT
  Sex: Male
  Weight: 126.9 kg

DRUGS (5)
  1. NPLATE [Suspect]
     Indication: IDIOPATHIC THROMBOCYTOPENIC PURPURA
     Dosage: 375 MUG, QWK
     Route: 058
     Dates: start: 20120824, end: 20121001
  2. LASIX                              /00032601/ [Concomitant]
     Indication: CARDIAC FAILURE CONGESTIVE
  3. METOLAZONE [Concomitant]
     Indication: CARDIAC FAILURE CONGESTIVE
     Dosage: UNK
     Dates: start: 20120909
  4. ATORVASTATIN [Concomitant]
     Route: 048
  5. COLCHICINE [Concomitant]
     Route: 048

REACTIONS (1)
  - Acute myocardial infarction [Fatal]
